FAERS Safety Report 21919784 (Version 5)
Quarter: 2024Q3

REPORT INFORMATION
  Report Type: Spontaneous
  Country: US (occurrence: US)
  Receive Date: 20230127
  Receipt Date: 20240711
  Transmission Date: 20241016
  Serious: Yes (Other)
  Sender: PIERRE FABRE MEDICAMENT
  Company Number: US-PFM-2022-06721

PATIENT
  Sex: Female
  Weight: 7.878 kg

DRUGS (4)
  1. HEMANGEOL [Suspect]
     Active Substance: PROPRANOLOL HYDROCHLORIDE
     Indication: Haemangioma
     Dosage: 1 ML, BID (2/DAY)
     Route: 048
  2. HEMANGEOL [Suspect]
     Active Substance: PROPRANOLOL HYDROCHLORIDE
     Dosage: 1.4 ML, BID (2/DAY)
     Route: 048
  3. HEMANGEOL [Suspect]
     Active Substance: PROPRANOLOL HYDROCHLORIDE
     Dosage: 1.6 ML, BID (2/DAY)
     Route: 048
  4. HEMANGEOL [Suspect]
     Active Substance: PROPRANOLOL HYDROCHLORIDE
     Dosage: 1.8 ML, BID (2/DAY)
     Route: 048

REACTIONS (7)
  - Renal disorder [Unknown]
  - COVID-19 [Recovering/Resolving]
  - Urinary tract infection [Unknown]
  - Pyrexia [Unknown]
  - Nasal congestion [Unknown]
  - Disease recurrence [Unknown]
  - Intentional product use issue [Unknown]
